FAERS Safety Report 8618297-0 (Version None)
Quarter: 2012Q3

REPORT INFORMATION
  Report Type: 
  Country: None (occurrence: None)
  Receive Date: 20120824
  Receipt Date: 20120814
  Transmission Date: 20120928
  Serious: Yes (Hospitalization)
  Sender: FDA-Public Use
  Company Number: US-BIOGENIDEC-2012BI031081

PATIENT
  Age: 42 Year
  Sex: Female

DRUGS (2)
  1. AVONEX [Suspect]
     Route: 030
     Dates: start: 20120401, end: 20120801
  2. AVONEX [Suspect]
     Indication: MULTIPLE SCLEROSIS
     Route: 030

REACTIONS (7)
  - THROMBOSIS [None]
  - INJECTION SITE INFECTION [None]
  - LOSS OF CONSCIOUSNESS [None]
  - INJECTION SITE SWELLING [None]
  - THINKING ABNORMAL [None]
  - PYREXIA [None]
  - INJECTION SITE PAIN [None]
